FAERS Safety Report 19702771 (Version 1)
Quarter: 2021Q3

REPORT INFORMATION
  Report Type: Spontaneous
  Country: DE (occurrence: DE)
  Receive Date: 20210816
  Receipt Date: 20210816
  Transmission Date: 20211014
  Serious: Yes (Hospitalization)
  Sender: FDA-Public Use
  Company Number: DE-AMGEN-DEUSP2021124497

PATIENT
  Age: 69 Year
  Sex: Female

DRUGS (19)
  1. CARBOPLATIN. [Suspect]
     Active Substance: CARBOPLATIN
     Dosage: 586 MILLIGRAM
     Route: 042
     Dates: start: 20210217, end: 20210217
  2. OLAPARIB. [Suspect]
     Active Substance: OLAPARIB
     Indication: OVARIAN CANCER
     Dosage: 300 MILLIGRAM
     Route: 048
  3. PACLITAXEL. [Suspect]
     Active Substance: PACLITAXEL
     Dosage: 10 MILLIGRAM
     Route: 042
     Dates: start: 20210331, end: 20210331
  4. BEVACIZUMAB. [Suspect]
     Active Substance: BEVACIZUMAB
     Dosage: 990 MILLIGRAM
     Route: 042
     Dates: start: 20210421, end: 20210421
  5. PACLITAXEL. [Suspect]
     Active Substance: PACLITAXEL
     Dosage: 10 MILLIGRAM
     Route: 042
     Dates: start: 20210120, end: 20210120
  6. BEVACIZUMAB. [Suspect]
     Active Substance: BEVACIZUMAB
     Dosage: 990 MILLIGRAM
     Route: 042
     Dates: start: 20210512, end: 20210512
  7. CARBOPLATIN. [Suspect]
     Active Substance: CARBOPLATIN
     Dosage: 514 MILLIGRAM
     Route: 042
     Dates: start: 20210512, end: 20210512
  8. BEVACIZUMAB. [Suspect]
     Active Substance: BEVACIZUMAB
     Indication: OVARIAN CANCER
     Dosage: 990 MILLIGRAM
     Route: 042
     Dates: start: 20210217, end: 20210217
  9. BEVACIZUMAB. [Suspect]
     Active Substance: BEVACIZUMAB
     Dosage: 990 MILLIGRAM
     Route: 042
     Dates: start: 20210310
  10. DURVALUMAB. [Suspect]
     Active Substance: DURVALUMAB
     Indication: OVARIAN CANCER
     Dosage: 1120 MILLIGRAM, Q3WK
     Route: 042
     Dates: start: 20210217
  11. PACLITAXEL. [Suspect]
     Active Substance: PACLITAXEL
     Indication: OVARIAN CANCER
     Dosage: 10 MILLIGRAM
     Route: 042
     Dates: start: 20210421, end: 20210421
  12. PACLITAXEL. [Suspect]
     Active Substance: PACLITAXEL
     Dosage: 10 MILLIGRAM
     Route: 042
     Dates: start: 20210512
  13. CARBOPLATIN. [Suspect]
     Active Substance: CARBOPLATIN
     Dosage: 514 MILLIGRAM
     Route: 042
     Dates: start: 20210421, end: 20210421
  14. CARBOPLATIN. [Suspect]
     Active Substance: CARBOPLATIN
     Dosage: 514 MILLIGRAM
     Route: 042
     Dates: start: 20210310
  15. BEVACIZUMAB. [Suspect]
     Active Substance: BEVACIZUMAB
     Dosage: 990 MILLIGRAM
     Route: 042
     Dates: start: 20210331, end: 20210331
  16. PACLITAXEL. [Suspect]
     Active Substance: PACLITAXEL
     Dosage: 10 MILLIGRAM
     Route: 042
     Dates: start: 20210217, end: 20210217
  17. CARBOPLATIN. [Suspect]
     Active Substance: CARBOPLATIN
     Indication: OVARIAN CANCER
     Dosage: 520 MILLIGRAM
     Route: 042
     Dates: start: 20210331, end: 20210331
  18. AKYNZEO [FOSNETUPITANT CHLORIDE HYDROCHLORIDE;PALONOSETRON HYDROCHLORI [Concomitant]
     Indication: PROPHYLAXIS
     Dosage: 300 MG
     Route: 048
     Dates: start: 20210120
  19. PACLITAXEL. [Suspect]
     Active Substance: PACLITAXEL
     Dosage: 10 MILLIGRAM
     Route: 042
     Dates: start: 20210310, end: 20210310

REACTIONS (1)
  - General physical health deterioration [Recovered/Resolved]

NARRATIVE: CASE EVENT DATE: 20210424
